FAERS Safety Report 6605062-9 (Version None)
Quarter: 2010Q1

REPORT INFORMATION
  Report Type: 
  Country: None (occurrence: None)
  Receive Date: 20100226
  Receipt Date: 20100216
  Transmission Date: 20100710
  Serious: Yes (Other)
  Sender: FDA-Public Use
  Company Number: US-ELI_LILLY_AND_COMPANY-US201002004892

PATIENT
  Sex: Male

DRUGS (4)
  1. HUMATROPE [Suspect]
     Dosage: 0.3 MG, UNK
  2. HUMATROPE [Suspect]
     Dosage: 0.2 MG, UNK
  3. HYDROCORT [Concomitant]
  4. HORMONES AND RELATED AGENTS [Concomitant]

REACTIONS (3)
  - HEART RATE DECREASED [None]
  - HORMONE LEVEL ABNORMAL [None]
  - IRRITABILITY [None]
